FAERS Safety Report 10067320 (Version 1)
Quarter: 2014Q2

REPORT INFORMATION
  Report Type: Spontaneous
  Country: US (occurrence: US)
  Receive Date: 20140409
  Receipt Date: 20140409
  Transmission Date: 20141212
  Serious: No
  Sender: FDA-Public Use
  Company Number: US-DRREDDYS-USA/USA/13/0028950

PATIENT
  Age: 54 Year
  Sex: Female
  Weight: 79.45 kg

DRUGS (1)
  1. AMOXICILLIN W/CLAVULANATE POTASSIUM 875 MG TABLETS [Suspect]
     Indication: BRONCHITIS
     Route: 048
     Dates: start: 201304

REACTIONS (1)
  - Skin discolouration [Unknown]
